FAERS Safety Report 5538325-9 (Version None)
Quarter: 2007Q4

REPORT INFORMATION
  Report Type: 
  Country: None (occurrence: None)
  Receive Date: 20071205
  Receipt Date: 20071204
  Transmission Date: 20080405
  Serious: Yes (Hospitalization)
  Sender: FDA-Public Use
  Company Number: TAP2007Q01589

PATIENT
  Age: 68 Year
  Sex: Male
  Weight: 95.5 kg

DRUGS (8)
  1. PREVACID [Suspect]
     Indication: GASTROOESOPHAGEAL REFLUX DISEASE
     Dosage: 30 MG, 1 IN 1 D, PER ORAL; 30 MG, 2 IN 1 D, PER ORAL;
     Route: 048
     Dates: start: 20000101, end: 20070801
  2. PREVACID [Suspect]
     Indication: HIATUS HERNIA
     Dosage: 30 MG, 1 IN 1 D, PER ORAL; 30 MG, 2 IN 1 D, PER ORAL;
     Route: 048
     Dates: start: 20000101, end: 20070801
  3. PREVACID [Suspect]
     Indication: GASTROOESOPHAGEAL REFLUX DISEASE
     Dosage: 30 MG, 1 IN 1 D, PER ORAL; 30 MG, 2 IN 1 D, PER ORAL;
     Route: 048
     Dates: start: 20070801, end: 20070901
  4. PREVACID [Suspect]
     Indication: HIATUS HERNIA
     Dosage: 30 MG, 1 IN 1 D, PER ORAL; 30 MG, 2 IN 1 D, PER ORAL;
     Route: 048
     Dates: start: 20070801, end: 20070901
  5. PREVACID [Suspect]
     Indication: GASTROOESOPHAGEAL REFLUX DISEASE
     Dosage: 30 MG, 1 IN 1 D, PER ORAL; 30 MG, 2 IN 1 D, PER ORAL;
     Route: 048
     Dates: start: 20070901, end: 20071101
  6. PREVACID [Suspect]
     Indication: HIATUS HERNIA
     Dosage: 30 MG, 1 IN 1 D, PER ORAL; 30 MG, 2 IN 1 D, PER ORAL;
     Route: 048
     Dates: start: 20070901, end: 20071101
  7. PREVACID [Suspect]
     Indication: GASTROOESOPHAGEAL REFLUX DISEASE
     Dosage: 30 MG, 1 IN 1 D, PER ORAL; 30 MG, 2 IN 1 D, PER ORAL;
     Route: 048
     Dates: start: 20071101
  8. PREVACID [Suspect]
     Indication: HIATUS HERNIA
     Dosage: 30 MG, 1 IN 1 D, PER ORAL; 30 MG, 2 IN 1 D, PER ORAL;
     Route: 048
     Dates: start: 20071101

REACTIONS (4)
  - CONDITION AGGRAVATED [None]
  - GASTROOESOPHAGEAL REFLUX DISEASE [None]
  - INSOMNIA [None]
  - PNEUMONIA ASPIRATION [None]
